FAERS Safety Report 8907297 (Version 1)
Quarter: 2012Q4

REPORT INFORMATION
  Report Type: 
  Country: US (occurrence: US)
  Receive Date: 20121114
  Receipt Date: 20121114
  Transmission Date: 20130627
  Serious: No
  Sender: FDA-Public Use
  Company Number: US-009507513-1208USA000032

PATIENT
  Age: 47 None
  Sex: Female
  Weight: 58.96 kg

DRUGS (7)
  1. PEGINTRON [Suspect]
     Indication: HEPATITIS C
     Dosage: UNK
     Route: 058
     Dates: start: 20080301, end: 20080701
  2. PEGINTRON [Suspect]
     Dosage: UNK
     Route: 058
     Dates: start: 20120601
  3. RIBAVIRIN [Suspect]
     Indication: HEPATITIS C
     Dosage: UNK
     Route: 048
     Dates: start: 20080301, end: 20080701
  4. RIBAVIRIN [Suspect]
     Dosage: UNK
     Route: 048
     Dates: start: 20090301, end: 20091001
  5. RIBAVIRIN [Suspect]
     Dosage: UNK
     Route: 048
     Dates: start: 201206
  6. VICTRELIS [Suspect]
     Indication: HEPATITIS C
     Dosage: UNK
     Route: 048
     Dates: start: 20120706
  7. INFERGEN [Concomitant]
     Indication: HEPATITIS C
     Dosage: UNK
     Dates: start: 20090301, end: 20091001

REACTIONS (12)
  - Drug ineffective [Unknown]
  - Back pain [Unknown]
  - Paranasal sinus hypersecretion [Unknown]
  - Hepatitis C [Unknown]
  - Disturbance in attention [Unknown]
  - Abdominal pain [Unknown]
  - Fatigue [Unknown]
  - Headache [Unknown]
  - Nausea [Unknown]
  - Swelling face [Unknown]
  - Cough [Unknown]
  - Diarrhoea [Unknown]
